FAERS Safety Report 6409497-9 (Version None)
Quarter: 2009Q4

REPORT INFORMATION
  Report Type: 
  Country: None (occurrence: None)
  Receive Date: 20091019
  Receipt Date: 20091007
  Transmission Date: 20100525
  Serious: Yes (Hospitalization)
  Sender: FDA-Public Use
  Company Number: 2009AL006487

PATIENT
  Age: 59 Year
  Sex: Female

DRUGS (4)
  1. PHENYTOIN [Suspect]
     Indication: CONVULSION
     Dosage: 300 MG;QD;PO
     Route: 048
  2. LISINOPRIL [Concomitant]
  3. TIOTROPIUM [Concomitant]
  4. ALBUTEROL SULFATE [Suspect]
     Dosage: PRN INH
     Route: 045

REACTIONS (7)
  - DECREASED APPETITE [None]
  - DRUG RASH WITH EOSINOPHILIA AND SYSTEMIC SYMPTOMS [None]
  - DYSPHAGIA [None]
  - HEART RATE INCREASED [None]
  - HEPATIC FAILURE [None]
  - LIP SWELLING [None]
  - RESPIRATORY DISORDER [None]
